FAERS Safety Report 25351925 (Version 1)
Quarter: 2025Q2

REPORT INFORMATION
  Report Type: Spontaneous
  Country: CA (occurrence: CA)
  Receive Date: 20250523
  Receipt Date: 20250523
  Transmission Date: 20250717
  Serious: Yes (Life-Threatening, Hospitalization)
  Sender: CHEPLAPHARM
  Company Number: CA-ASTRAZENECA-001119578

PATIENT
  Sex: Female
  Weight: 3 kg

DRUGS (2)
  1. QUETIAPINE [Suspect]
     Active Substance: QUETIAPINE
     Indication: Anxiety
     Dosage: DAILY DOSE: 75 MILLIGRAM
     Route: 048
  2. PHYTONADIONE [Concomitant]
     Active Substance: PHYTONADIONE

REACTIONS (4)
  - Hypotonia [Recovered/Resolved]
  - Exposure via breast milk [Recovered/Resolved]
  - Maternal drugs affecting foetus [Recovered/Resolved]
  - Neonatal disorder [Recovered/Resolved]
